FAERS Safety Report 9127201 (Version 1)
Quarter: 2013Q1

REPORT INFORMATION
  Report Type: Spontaneous
  Country: US (occurrence: US)
  Receive Date: 20130228
  Receipt Date: 20130228
  Transmission Date: 20140127
  Serious: No
  Sender: FDA-Public Use
  Company Number: US-GLAXOSMITHKLINE-A0961416A

PATIENT
  Age: 26 Year
  Sex: Female
  Weight: 54.5 kg

DRUGS (4)
  1. LAMICTAL [Suspect]
     Indication: EPILEPSY
     Dosage: 250MG VARIABLE DOSE
     Route: 048
  2. LAMICTAL XR [Suspect]
     Indication: EPILEPSY
     Route: 065
  3. SEASONIQUE [Concomitant]
  4. UNKNOWN MEDICATION [Concomitant]

REACTIONS (3)
  - Diplopia [Recovered/Resolved]
  - Nausea [Recovered/Resolved]
  - Ileostomy [Unknown]
